FAERS Safety Report 26111391 (Version 1)
Quarter: 2025Q4

REPORT INFORMATION
  Report Type: Spontaneous
  Country: EU (occurrence: EU)
  Receive Date: 20251202
  Receipt Date: 20251202
  Transmission Date: 20260117
  Serious: Yes (Hospitalization)
  Sender: ALEXION PHARMACEUTICALS
  Company Number: EU-ASTRAZENECA-202511GLO028453FR

PATIENT
  Age: 30 Year
  Sex: Female

DRUGS (2)
  1. OMEPRAZOLE [Suspect]
     Active Substance: OMEPRAZOLE
     Indication: Gastrooesophageal reflux disease
     Dosage: 40 MILLIGRAM, QD
     Dates: start: 20250510
  2. DIAZEPAM [Suspect]
     Active Substance: DIAZEPAM
     Indication: Prophylaxis against alcoholic withdrawal syndrome
     Dosage: 30 MILLIGRAM, QD

REACTIONS (5)
  - Pre-eclampsia [Recovered/Resolved]
  - Prolonged labour [Recovered/Resolved]
  - Caesarean section [Recovered/Resolved]
  - Proteinuria [Unknown]
  - Polyhydramnios [Recovered/Resolved]
